FAERS Safety Report 6470627-4 (Version None)
Quarter: 2009Q4

REPORT INFORMATION
  Report Type: 
  Country: None (occurrence: None)
  Receive Date: 20091203
  Receipt Date: 20091020
  Transmission Date: 20100525
  Serious: No
  Sender: FDA-Public Use
  Company Number: US-ABBOTT-09P-163-0604501-00

PATIENT
  Age: 30 Year
  Sex: Female
  Weight: 90.8 kg

DRUGS (9)
  1. MERIDIA [Suspect]
     Indication: WEIGHT DECREASED
     Route: 048
     Dates: start: 20091007, end: 20091014
  2. MERIDIA [Suspect]
     Route: 048
     Dates: start: 20091014
  3. LYBREL [Concomitant]
     Indication: CONTRACEPTION
     Route: 048
  4. LYBREL [Concomitant]
     Route: 048
  5. SINGULAIR [Concomitant]
     Indication: ASTHMA
     Route: 048
  6. SINGULAIR [Concomitant]
     Indication: SEASONAL ALLERGY
  7. ALLEGRA [Concomitant]
     Indication: ASTHMA
     Route: 048
  8. ALLEGRA [Concomitant]
     Indication: SEASONAL ALLERGY
  9. VERAMIST [Concomitant]
     Indication: SEASONAL ALLERGY
     Route: 045

REACTIONS (7)
  - ABSCESS DRAINAGE [None]
  - DYSPNOEA [None]
  - NASAL CONGESTION [None]
  - OROPHARYNGEAL PAIN [None]
  - SINUS HEADACHE [None]
  - TONSILLITIS [None]
  - VAGINAL HAEMORRHAGE [None]
